FAERS Safety Report 23542886 (Version 1)
Quarter: 2024Q1

REPORT INFORMATION
  Report Type: Spontaneous
  Country: NL (occurrence: NL)
  Receive Date: 20240220
  Receipt Date: 20240220
  Transmission Date: 20240410
  Serious: Yes (Life-Threatening)
  Sender: FDA-Public Use
  Company Number: NL-ROCHE-3508116

PATIENT
  Age: 65 Year
  Sex: Male

DRUGS (3)
  1. CAPECITABINE [Suspect]
     Active Substance: CAPECITABINE
     Indication: Colorectal cancer metastatic
     Route: 048
     Dates: start: 20231012, end: 20231015
  2. BEVACIZUMAB [Suspect]
     Active Substance: BEVACIZUMAB
     Indication: Colorectal cancer metastatic
     Dates: start: 20231012, end: 20231015
  3. OXALIPLATIN [Suspect]
     Active Substance: OXALIPLATIN
     Indication: Colorectal cancer metastatic
     Dates: start: 20231012, end: 20231015

REACTIONS (1)
  - Ileus [Not Recovered/Not Resolved]

NARRATIVE: CASE EVENT DATE: 20231017
